FAERS Safety Report 14427586 (Version 1)
Quarter: 2018Q1

REPORT INFORMATION
  Report Type: Spontaneous
  Country: JP (occurrence: JP)
  Receive Date: 20180123
  Receipt Date: 20180123
  Transmission Date: 20180509
  Serious: Yes (Hospitalization, Other)
  Sender: FDA-Public Use
  Company Number: JP-BAUSCH-BL-2018-001421

PATIENT
  Age: 51 Year
  Sex: Male

DRUGS (4)
  1. ISOSORBIDE DINITRATE. [Concomitant]
     Active Substance: ISOSORBIDE DINITRATE
     Indication: ARTERIOSPASM CORONARY
  2. NIFEDIPINE. [Suspect]
     Active Substance: NIFEDIPINE
     Indication: ARTERIOSPASM CORONARY
     Route: 065
  3. TACROLIMUS. [Suspect]
     Active Substance: TACROLIMUS
     Indication: COLITIS ULCERATIVE
     Route: 065
  4. NICORANDIL [Concomitant]
     Active Substance: NICORANDIL
     Indication: ARTERIOSPASM CORONARY

REACTIONS (4)
  - Condition aggravated [Recovering/Resolving]
  - Drug level increased [Unknown]
  - Myocardial ischaemia [Recovered/Resolved]
  - Drug interaction [Recovering/Resolving]
